FAERS Safety Report 8543826-5 (Version None)
Quarter: 2012Q3

REPORT INFORMATION
  Report Type: 
  Country: None (occurrence: None)
  Receive Date: 20120727
  Receipt Date: 20120716
  Transmission Date: 20120928
  Serious: Yes (Other)
  Sender: FDA-Public Use
  Company Number: US-BAYER-2012-072313

PATIENT
  Age: 45 Year
  Sex: Female
  Weight: 82 kg

DRUGS (5)
  1. RID 1-2-3 SYSTEM [Suspect]
     Dosage: 1 DF, ONCE
     Route: 061
     Dates: start: 20120716, end: 20120716
  2. AMBIEN [Concomitant]
  3. LYRICA [Concomitant]
  4. DIAZEPAM [Concomitant]
  5. SUBOXONE [Concomitant]

REACTIONS (2)
  - FEELING ABNORMAL [None]
  - DYSPNOEA [None]
